FAERS Safety Report 7791661-8 (Version None)
Quarter: 2011Q4

REPORT INFORMATION
  Report Type: 
  Country: None (occurrence: None)
  Receive Date: 20111003
  Receipt Date: 20110920
  Transmission Date: 20120403
  Serious: Yes (Hospitalization)
  Sender: FDA-Public Use
  Company Number: US-JNJFOC-20110908792

PATIENT
  Sex: Male
  Weight: 83.92 kg

DRUGS (2)
  1. REMICADE [Suspect]
     Indication: CROHN'S DISEASE
     Route: 042
     Dates: start: 20100101, end: 20100101
  2. REMICADE [Suspect]
     Route: 042
     Dates: start: 20110823, end: 20110911

REACTIONS (8)
  - TRISMUS [None]
  - ASTHENIA [None]
  - JOINT LOCK [None]
  - INTESTINAL OPERATION [None]
  - DYSPHAGIA [None]
  - ARTHRALGIA [None]
  - DRUG INEFFECTIVE [None]
  - THROMBOSIS [None]
